FAERS Safety Report 23139230 (Version 1)
Quarter: 2023Q4

REPORT INFORMATION
  Report Type: Spontaneous
  Country: US (occurrence: US)
  Receive Date: 20231102
  Receipt Date: 20231102
  Transmission Date: 20240109
  Serious: No
  Sender: FDA-Public Use
  Company Number: US-KOWA PHARMACEUTICALS-2023KOW00042

PATIENT
  Age: 64 Year
  Sex: Female
  Weight: 77.098 kg

DRUGS (3)
  1. SEGLENTIS [Suspect]
     Active Substance: CELECOXIB\TRAMADOL HYDROCHLORIDE
     Indication: Procedural pain
     Dosage: 2 TABLETS, 2X/DAY (2Q12H)
     Dates: start: 20230811, end: 20230816
  2. PROPRANOLOL [Concomitant]
     Active Substance: PROPRANOLOL HYDROCHLORIDE
     Dosage: UNK
  3. EMGALITY [Concomitant]
     Active Substance: GALCANEZUMAB-GNLM
     Dosage: UNK

REACTIONS (1)
  - Confusion postoperative [Recovered/Resolved]

NARRATIVE: CASE EVENT DATE: 20230811
